FAERS Safety Report 18171505 (Version 1)
Quarter: 2020Q3

REPORT INFORMATION
  Report Type: Spontaneous
  Country: US (occurrence: US)
  Receive Date: 20200819
  Receipt Date: 20200819
  Transmission Date: 20201103
  Serious: Yes (Hospitalization, Other)
  Sender: FDA-Public Use
  Company Number: US-NOVOPROD-747075

PATIENT
  Age: 65 Year
  Sex: Male
  Weight: 112.94 kg

DRUGS (3)
  1. ALLOPURINOL. [Suspect]
     Active Substance: ALLOPURINOL
     Indication: GOUT
     Dosage: UNK
     Route: 065
  2. LEVEMIR [Suspect]
     Active Substance: INSULIN DETEMIR
     Indication: TYPE 2 DIABETES MELLITUS
     Dosage: 14 IU, QD (14 UNITS PER NIGHT)
     Route: 058
     Dates: start: 2014
  3. NOVOLOG [Suspect]
     Active Substance: INSULIN ASPART
     Indication: TYPE 2 DIABETES MELLITUS
     Dosage: 8 UNITS IN AM; 4 UNITS AT NOON; 6 UNITS IN PM AND POSSIBLY 1?2 UNITS FOR SNACK
     Route: 058
     Dates: start: 2010

REACTIONS (4)
  - Seizure [Unknown]
  - Renal failure [Unknown]
  - Hypersensitivity [Unknown]
  - Loss of consciousness [Unknown]
